FAERS Safety Report 7319647-8 (Version None)
Quarter: 2011Q1

REPORT INFORMATION
  Report Type: 
  Country: None (occurrence: None)
  Receive Date: 20110228
  Receipt Date: 20100629
  Transmission Date: 20110831
  Serious: No
  Sender: FDA-Public Use
  Company Number: A0867672A

PATIENT
  Age: 37 Year
  Sex: Male

DRUGS (2)
  1. EFFEXOR XR [Concomitant]
  2. LAMICTAL [Suspect]
     Dosage: 1TAB PER DAY
     Route: 048
     Dates: start: 20070101

REACTIONS (1)
  - FEELING ABNORMAL [None]
